FAERS Safety Report 8420832-2 (Version None)
Quarter: 2012Q2

REPORT INFORMATION
  Report Type: 
  Country: None (occurrence: None)
  Receive Date: 20120530
  Receipt Date: 20120520
  Transmission Date: 20120825
  Serious: Yes (Hospitalization, Disabling)
  Sender: FDA-Public Use
  Company Number: AU-DEXPHARM-20120589

PATIENT
  Sex: Female

DRUGS (2)
  1. CHLORHEXIDINE GLUCONATE [Suspect]
     Indication: CAESAREAN SECTION
     Dosage: EPIDURAL
     Route: 008
     Dates: start: 20010101
  2. BUPIVACAINE HCL [Concomitant]

REACTIONS (5)
  - PARAPLEGIA [None]
  - INCORRECT ROUTE OF DRUG ADMINISTRATION [None]
  - PRODUCT CONTAMINATION CHEMICAL [None]
  - MATERNAL EXPOSURE DURING PREGNANCY [None]
  - ARACHNOIDITIS [None]
